FAERS Safety Report 17362284 (Version 1)
Quarter: 2020Q1

REPORT INFORMATION
  Report Type: Report from Study
  Country: AR (occurrence: AR)
  Receive Date: 20200203
  Receipt Date: 20200203
  Transmission Date: 20200409
  Serious: Yes (Death, Hospitalization, Other)
  Sender: FDA-Public Use
  Company Number: AR-SEATTLE GENETICS-2020SGN00641

PATIENT
  Age: 20 Year
  Sex: Male

DRUGS (1)
  1. BRENTUXIMAB VEDOTIN-MPI [Suspect]
     Active Substance: BRENTUXIMAB VEDOTIN
     Indication: NON-HODGKIN^S LYMPHOMA
     Dosage: 50 MG, UNK
     Route: 042
     Dates: start: 20190924

REACTIONS (7)
  - Off label use [Unknown]
  - Decreased appetite [Unknown]
  - Dyspnoea [Unknown]
  - Coma [Unknown]
  - Hypersensitivity [Unknown]
  - Death [Fatal]
  - Pyrexia [Unknown]

NARRATIVE: CASE EVENT DATE: 20200123
